FAERS Safety Report 26207062 (Version 1)
Quarter: 2025Q4

REPORT INFORMATION
  Report Type: Spontaneous
  Country: US (occurrence: US)
  Receive Date: 20251229
  Receipt Date: 20251229
  Transmission Date: 20260117
  Serious: Yes (Hospitalization)
  Sender: DOMPE FARMACEUTICI
  Company Number: US-FARMAPROD-202512-4301

PATIENT
  Sex: Male

DRUGS (20)
  1. OXERVATE [Suspect]
     Active Substance: CENEGERMIN-BKBJ
     Indication: Illness
     Dates: start: 20251002
  2. VALACYCLOVIR [Concomitant]
     Active Substance: VALACYCLOVIR HYDROCHLORIDE
  3. PREDNISONE [Concomitant]
     Active Substance: PREDNISONE
  4. MOXIFLOXACIN [Concomitant]
     Active Substance: MOXIFLOXACIN
  5. ATORVASTATIN CALCIUM [Concomitant]
     Active Substance: ATORVASTATIN CALCIUM
  6. PLAVIX [Concomitant]
     Active Substance: CLOPIDOGREL BISULFATE
  7. SPIRONOLACTONE [Concomitant]
     Active Substance: SPIRONOLACTONE
  8. VITAMINS [Concomitant]
     Active Substance: VITAMINS
  9. CYCLOBENZAPRINE HYDROCHLORIDE [Concomitant]
     Active Substance: CYCLOBENZAPRINE HYDROCHLORIDE
  10. TYLENOL 8HR [Concomitant]
     Active Substance: ACETAMINOPHEN
  11. HERBALS\TURMERIC [Concomitant]
     Active Substance: HERBALS\TURMERIC
     Dosage: 450MG-50MG
  12. PRED FORTE [Concomitant]
     Active Substance: PREDNISOLONE ACETATE
  13. FISH OIL [Concomitant]
     Active Substance: FISH OIL
     Dosage: 300-1000MG
  14. ASPIRIN [Concomitant]
     Active Substance: ASPIRIN
  15. RANEXA [Concomitant]
     Active Substance: RANOLAZINE
     Dosage: 12 HOURS
  16. VITAMIN C [Concomitant]
     Active Substance: ASCORBIC ACID
  17. METOPROLOL TARTRATE [Concomitant]
     Active Substance: METOPROLOL TARTRATE
  18. FUROSEMIDE [Concomitant]
     Active Substance: FUROSEMIDE
  19. OFLOXACIN [Concomitant]
     Active Substance: OFLOXACIN
  20. NITROGLYCERIN [Concomitant]
     Active Substance: NITROGLYCERIN

REACTIONS (1)
  - Hospitalisation [Unknown]
